FAERS Safety Report 4262956-X (Version None)
Quarter: 2004Q1

REPORT INFORMATION
  Report Type: 
  Country: None (occurrence: None)
  Receive Date: 20040102
  Receipt Date: 20040102
  Transmission Date: 20041129
  Serious: Yes (Hospitalization)
  Sender: FDA-Public Use
  Company Number: None

PATIENT
  Sex: Male
  Weight: 75.9 kg

DRUGS (5)
  1. NAPROXEN SODIUM [Suspect]
     Indication: INCISION SITE COMPLICATION
     Dosage: 440 MG PO BID-TID
     Route: 048
  2. NAPROXEN SODIUM [Suspect]
     Indication: PAIN
     Dosage: 440 MG PO BID-TID
     Route: 048
  3. LISINOPRIL [Concomitant]
  4. TRIAMTERENE AND HYDROCHLOROTHIAZIDE [Concomitant]
  5. PSEUDOEPHEDRINE HCL [Concomitant]

REACTIONS (7)
  - DIZZINESS [None]
  - FATIGUE [None]
  - HEADACHE [None]
  - HYPERKALAEMIA [None]
  - MUSCLE CRAMP [None]
  - PARAESTHESIA [None]
  - RENAL FAILURE ACUTE [None]
